FAERS Safety Report 10019459 (Version 6)
Quarter: 2015Q1

REPORT INFORMATION
  Report Type: Spontaneous
  Country: US (occurrence: US)
  Receive Date: 20140318
  Receipt Date: 20150302
  Transmission Date: 20150720
  Serious: Yes (Hospitalization)
  Sender: FDA-Public Use
  Company Number: US-009507513-1403USA006501

PATIENT
  Sex: Male
  Weight: 104.31 kg

DRUGS (4)
  1. PROPECIA [Suspect]
     Active Substance: FINASTERIDE
     Indication: ANDROGENETIC ALOPECIA
     Dosage: 1 MG,
     Route: 048
     Dates: start: 20050425, end: 20110613
  2. FINASTERIDE. [Suspect]
     Active Substance: FINASTERIDE
     Indication: ALOPECIA
     Dosage: 5 MG, UNK
     Route: 048
     Dates: start: 20070205, end: 20120610
  3. PROSCAR [Suspect]
     Active Substance: FINASTERIDE
     Indication: ANDROGENETIC ALOPECIA
     Dosage: 5 MG, UNK
     Route: 048
     Dates: start: 20030722, end: 20050825
  4. FINASTERIDE. [Suspect]
     Active Substance: FINASTERIDE
     Dosage: 5 MG, UNK
     Dates: start: 20100515, end: 20110804

REACTIONS (44)
  - Dyspepsia [Unknown]
  - Ulcer [Unknown]
  - Prostatitis [Unknown]
  - Haematuria [Unknown]
  - Drug effect variable [Unknown]
  - Depression [Not Recovered/Not Resolved]
  - Anxiety [Recovering/Resolving]
  - Prostatic disorder [Unknown]
  - Benign prostatic hyperplasia [Unknown]
  - Premature ejaculation [Unknown]
  - Vitamin D deficiency [Unknown]
  - Prostatitis [Unknown]
  - Gastrooesophageal reflux disease [Unknown]
  - Inappropriate schedule of drug administration [Unknown]
  - Appendicectomy [Unknown]
  - Hypogonadism male [Unknown]
  - Acne [Unknown]
  - Nausea [Unknown]
  - Stress [Unknown]
  - Amnesia [Unknown]
  - Sleep apnoea syndrome [Unknown]
  - Erectile dysfunction [Not Recovered/Not Resolved]
  - Pneumonia [Unknown]
  - Blood testosterone decreased [Unknown]
  - Hypercholesterolaemia [Unknown]
  - Lumbar vertebral fracture [Unknown]
  - Ligament rupture [Unknown]
  - Headache [Unknown]
  - Spinal osteoarthritis [Unknown]
  - Urinary retention [Unknown]
  - Inappropriate schedule of drug administration [Unknown]
  - Diarrhoea [Unknown]
  - Sexual dysfunction [Not Recovered/Not Resolved]
  - Libido decreased [Unknown]
  - Feeling abnormal [Recovering/Resolving]
  - Disturbance in attention [Not Recovered/Not Resolved]
  - Drug administration error [Unknown]
  - Skin reaction [Unknown]
  - Tinnitus [Unknown]
  - Pain in extremity [Unknown]
  - Urine flow decreased [Unknown]
  - Knee operation [Unknown]
  - Meniscus injury [Unknown]
  - Blood pressure increased [Unknown]

NARRATIVE: CASE EVENT DATE: 20030722
